FAERS Safety Report 25821040 (Version 1)
Quarter: 2025Q3

REPORT INFORMATION
  Report Type: Spontaneous
  Country: KR (occurrence: KR)
  Receive Date: 20250919
  Receipt Date: 20250919
  Transmission Date: 20251020
  Serious: Yes (Other)
  Sender: Kenvue
  Company Number: KR-KENVUE-20250905290

PATIENT

DRUGS (7)
  1. TYLENOL 8HR [Suspect]
     Active Substance: ACETAMINOPHEN
     Indication: Product used for unknown indication
     Dosage: 1 DOSAGE FORM, THRICE A DAY, 1{DF} / 0.333DAY
     Route: 065
     Dates: start: 20230419
  2. DIAZEPAM [Suspect]
     Active Substance: DIAZEPAM
     Indication: Product used for unknown indication
     Dosage: 0.667 DOSAGE FORM, THRICE A DAY, 0.667{DF} / 0.333DAY
     Route: 065
     Dates: start: 20230419
  3. DIMENHYDRINATE [Suspect]
     Active Substance: DIMENHYDRINATE
     Indication: Product used for unknown indication
     Dosage: 1 DOSAGE FORM, THRICE A DAY, 1{DF} / 0.333DAY
     Route: 065
     Dates: start: 20230419
  4. GINKGO BILOBA LEAF EXTRACT [Suspect]
     Active Substance: GINKGO BILOBA LEAF EXTRACT
     Indication: Product used for unknown indication
     Dosage: 1 DOSAGE FORM, TWICE A DAY, 1{DF} / 0.5DAY
     Route: 065
  5. METOCLOPRAMIDE [Suspect]
     Active Substance: METOCLOPRAMIDE
     Indication: Product used for unknown indication
     Dosage: 1 DOSAGE FORM, THRICE A DAY, 1{DF} / 0.333DAY
     Route: 065
     Dates: start: 20230419
  6. LAFUTIDINE [Suspect]
     Active Substance: LAFUTIDINE
     Indication: Product used for unknown indication
     Dosage: 1 DOSAGE FORM, TWICE A DAY,  1{DF} / 0.5DAY
     Route: 065
     Dates: start: 20230419
  7. METFORMIN\TENELIGLIPTIN [Suspect]
     Active Substance: METFORMIN\TENELIGLIPTIN
     Indication: Product used for unknown indication
     Dosage: 1 DOSAGE FORM, ONCE A DAY, 1{DF} / 1DAY
     Route: 065
     Dates: start: 20230419, end: 20230421

REACTIONS (1)
  - Renal impairment [Unknown]

NARRATIVE: CASE EVENT DATE: 20230419
